FAERS Safety Report 4847131-X (Version None)
Quarter: 2005Q4

REPORT INFORMATION
  Report Type: 
  Country: None (occurrence: None)
  Receive Date: 20051202
  Receipt Date: 20051028
  Transmission Date: 20060501
  Serious: Yes (Life-Threatening, Other)
  Sender: FDA-Public Use
  Company Number: 2005160956

PATIENT
  Age: 80 Year
  Sex: Female
  Weight: 48 kg

DRUGS (5)
  1. ZYRTEC [Suspect]
     Indication: PYREXIA
     Dosage: 10  MG (10 MG, 1 IN 1 D), ORAL
     Route: 048
     Dates: start: 20050724, end: 20050730
  2. ZYRTEC [Suspect]
     Indication: URTICARIA
     Dosage: 10  MG (10 MG, 1 IN 1 D), ORAL
     Route: 048
     Dates: start: 20050724, end: 20050730
  3. CIMETIDINE [Concomitant]
  4. DICLOFENAC SODIUM [Concomitant]
  5. BETAMETHASONE [Concomitant]

REACTIONS (4)
  - ABDOMINAL PAIN LOWER [None]
  - INFECTION [None]
  - INFLAMMATION [None]
  - THROMBOCYTOPENIA [None]
